FAERS Safety Report 25703277 (Version 1)
Quarter: 2025Q3

REPORT INFORMATION
  Report Type: Spontaneous
  Country: CN (occurrence: CN)
  Receive Date: 20250820
  Receipt Date: 20250820
  Transmission Date: 20251020
  Serious: Yes (Hospitalization)
  Sender: BAXTER
  Company Number: None

PATIENT
  Age: 60 Year
  Sex: Female
  Weight: 51 kg

DRUGS (10)
  1. CYCLOPHOSPHAMIDE [Suspect]
     Active Substance: CYCLOPHOSPHAMIDE
     Indication: Diffuse large B-cell lymphoma
     Dosage: 1 G, QD, IVGTT
     Route: 041
     Dates: start: 20250713, end: 20250713
  2. SODIUM CHLORIDE [Suspect]
     Active Substance: SODIUM CHLORIDE
     Dosage: 100 ML, QD (RITUXIMAB + 0.9% SODIUM CHLORIDE)
     Route: 041
     Dates: start: 20250712, end: 20250712
  3. SODIUM CHLORIDE [Suspect]
     Active Substance: SODIUM CHLORIDE
     Dosage: 400 ML, QD (RITUXIMAB + 0.9% SODIUM CHLORIDE)
     Route: 041
     Dates: start: 20250712, end: 20250712
  4. RITUXIMAB [Suspect]
     Active Substance: RITUXIMAB
     Indication: Diffuse large B-cell lymphoma
     Dosage: 500 MG, QD, IVGTT
     Route: 041
     Dates: start: 20250712, end: 20250712
  5. PIRARUBICIN HYDROCHLORIDE [Suspect]
     Active Substance: PIRARUBICIN HYDROCHLORIDE
     Indication: Diffuse large B-cell lymphoma
     Dosage: 70 MG, QD, IVGTT
     Route: 041
     Dates: start: 20250713, end: 20250713
  6. VINCRISTINE SULFATE [Suspect]
     Active Substance: VINCRISTINE SULFATE
     Indication: Diffuse large B-cell lymphoma
     Dosage: 2 MG, QD
     Route: 042
     Dates: start: 20250713, end: 20250713
  7. SODIUM CHLORIDE [Suspect]
     Active Substance: SODIUM CHLORIDE
     Indication: Diffuse large B-cell lymphoma
     Dosage: 100 ML, QD, IVGTT (CYCLOPHOSPHAMIDE + 0.9% SODIUM CHLORIDE)
     Route: 041
     Dates: start: 20250713, end: 20250713
  8. SODIUM CHLORIDE [Suspect]
     Active Substance: SODIUM CHLORIDE
     Dosage: 400 ML, QD  IVGTT (CYCLOPHOSPHAMIDE+ 0.9% SODIUM CHLORIDE)
     Route: 041
     Dates: start: 20250713, end: 20250713
  9. SODIUM CHLORIDE [Suspect]
     Active Substance: SODIUM CHLORIDE
     Indication: Diffuse large B-cell lymphoma
     Dosage: 10 ML, QD (VINDESINE SULFATE + 0.9% SODIUM CHLORIDE)
     Route: 042
     Dates: start: 20250713, end: 20250713
  10. DEXTROSE [Suspect]
     Active Substance: DEXTROSE MONOHYDRATE
     Indication: Diffuse large B-cell lymphoma
     Dosage: 250 ML, QD (PIRARUBICIN HYDROCHLORIDE + 5% GLUCOSE)
     Route: 041
     Dates: start: 20250713, end: 20250713

REACTIONS (2)
  - Granulocyte count decreased [Recovering/Resolving]
  - Neutrophil count decreased [Recovered/Resolved]

NARRATIVE: CASE EVENT DATE: 20250802
